FAERS Safety Report 10028280 (Version 1)
Quarter: 2014Q1

REPORT INFORMATION
  Report Type: Spontaneous
  Country: US (occurrence: None)
  Receive Date: 20140307
  Receipt Date: 20140307
  Transmission Date: 20141002
  Serious: Yes (Other)
  Sender: FDA-Public Use
  Company Number: 2013-US-004217

PATIENT
  Age: 54 Year
  Sex: Female
  Weight: 129.3 kg

DRUGS (2)
  1. XYREM [Suspect]
     Indication: CATAPLEXY
     Route: 048
     Dates: start: 201303, end: 2013
  2. XYREM [Suspect]
     Indication: NARCOLEPSY
     Route: 048
     Dates: start: 201303, end: 2013

REACTIONS (3)
  - Gastric operation [None]
  - Weight decreased [None]
  - Gastric bypass [None]
